FAERS Safety Report 9870556 (Version 1)
Quarter: 2014Q1

REPORT INFORMATION
  Report Type: Spontaneous
  Country: DK (occurrence: DK)
  Receive Date: 20140205
  Receipt Date: 20140205
  Transmission Date: 20141002
  Serious: Yes (Death, Other)
  Sender: FDA-Public Use
  Company Number: PHHY2014DK010146

PATIENT
  Sex: 0

DRUGS (3)
  1. CLONAZEPAM [Suspect]
  2. OLANZAPINE [Suspect]
  3. METHADONE [Suspect]

REACTIONS (2)
  - Overdose [Fatal]
  - Drug level increased [Unknown]
